FAERS Safety Report 6122307-2 (Version None)
Quarter: 2009Q1

REPORT INFORMATION
  Report Type: 
  Country: None (occurrence: None)
  Receive Date: 20090316
  Receipt Date: 20090316
  Transmission Date: 20090719
  Serious: Yes (Hospitalization, Other)
  Sender: FDA-Public Use
  Company Number: None

PATIENT
  Sex: Male
  Weight: 24.4942 kg

DRUGS (3)
  1. LITHIUM CARBONATE [Suspect]
     Indication: BIPOLAR DISORDER
     Dosage: 300MG 2X DAILY PO
     Route: 048
     Dates: start: 20090305, end: 20090309
  2. LITHIUM CARBONATE [Suspect]
     Indication: REACTIVE ATTACHMENT DISORDER OF INFANCY OR EARLY CHILDHOOD
     Dosage: 300MG 2X DAILY PO
     Route: 048
     Dates: start: 20090305, end: 20090309
  3. CLONIDINE [Concomitant]

REACTIONS (14)
  - COUGH [None]
  - DISORIENTATION [None]
  - DYSARTHRIA [None]
  - DYSPNOEA [None]
  - FALL [None]
  - GAIT DISTURBANCE [None]
  - IRRITABILITY [None]
  - MANIA [None]
  - NAUSEA [None]
  - NERVOUS SYSTEM DISORDER [None]
  - POSTURE ABNORMAL [None]
  - SOMNOLENCE [None]
  - SPEECH DISORDER [None]
  - TARDIVE DYSKINESIA [None]
